FAERS Safety Report 16543681 (Version 1)
Quarter: 2019Q3

REPORT INFORMATION
  Report Type: Spontaneous
  Country: US (occurrence: US)
  Receive Date: 20190709
  Receipt Date: 20190709
  Transmission Date: 20191004
  Serious: No
  Sender: FDA-Public Use
  Company Number: US-GLENMARK PHARMACEUTICALS-2019GMK041270

PATIENT

DRUGS (2)
  1. LITHIUM CARBONATE. [Suspect]
     Active Substance: LITHIUM CARBONATE
     Indication: PRODUCT USED FOR UNKNOWN INDICATION
     Dosage: 1 DF, OD
     Route: 065
  2. LITHIUM CARBONATE. [Suspect]
     Active Substance: LITHIUM CARBONATE
     Dosage: 0.5 DF, OD
     Route: 065

REACTIONS (2)
  - Wrong technique in product usage process [Unknown]
  - No adverse event [Unknown]
